FAERS Safety Report 4484964-6 (Version None)
Quarter: 2004Q3

REPORT INFORMATION
  Report Type: 
  Country: None (occurrence: None)
  Receive Date: 20040921
  Receipt Date: 20040426
  Transmission Date: 20050211
  Serious: Yes (Other)
  Sender: FDA-Public Use
  Company Number: 066-20785-04090125

PATIENT

DRUGS (3)
  1. THALIDOMIDE (THALIDOMIDE) [Suspect]
     Indication: WALDENSTROM'S MACROGLOBULINAEMIA
     Dosage: 200 TO 600 MG, AS TOLERATED ., HS, ORAL
     Route: 048
  2. CLARITHROMYCIN [Suspect]
     Indication: WALDENSTROM'S MACROGLOBULINAEMIA
     Dosage: 500 MG, BID, ORAL
     Route: 048
  3. DEXAMETHASONE [Suspect]
     Indication: WALDENSTROM'S MACROGLOBULINAEMIA
     Dosage: 40 MG, QWK, ORAL
     Route: 048

REACTIONS (1)
  - ARRHYTHMIA [None]
